FAERS Safety Report 10060409 (Version 2)
Quarter: 2014Q2

REPORT INFORMATION
  Report Type: Report from Study
  Country: US (occurrence: US)
  Receive Date: 20140404
  Receipt Date: 20140404
  Transmission Date: 20141212
  Serious: Yes (Hospitalization)
  Sender: FDA-Public Use
  Company Number: US-SA-LEUK-1000293

PATIENT
  Age: 71 Year
  Sex: Male
  Weight: 91.7 kg

DRUGS (25)
  1. LEUKINE [Suspect]
     Indication: MALIGNANT MELANOMA
     Dosage: 250 MCG, QD (ON DAYS 1-14) INDUCTION THERAPY
     Route: 058
     Dates: start: 20110802, end: 20111005
  2. LEUKINE [Suspect]
     Indication: MALIGNANT MELANOMA
     Dosage: 250 MCG, QD (ON DAYS 1-14) MAINTENANCE THERAPY
     Route: 058
     Dates: start: 20111025, end: 20111107
  3. IPILIMUMAB [Suspect]
     Indication: MALIGNANT MELANOMA
     Dosage: 10 MG/KG, ONCE
     Route: 042
     Dates: start: 20110802
  4. IPILIMUMAB [Suspect]
     Indication: MALIGNANT MELANOMA
     Dosage: 10 MG/KG, 90 MINUTES ON DAY 1, Q12 WEEKS
     Route: 042
  5. ACETYLSALICYLIC ACID [Concomitant]
     Dosage: 100 MG, QD
     Route: 048
  6. DOCUSATE SODIUM [Concomitant]
     Indication: CONSTIPATION
     Dosage: 100 MG, BID PRN
     Route: 048
  7. LORAZEPAM [Concomitant]
     Indication: ANXIETY
     Dosage: 1 MG, QD, PRN
     Route: 048
  8. LORAZEPAM [Concomitant]
     Indication: INSOMNIA
     Dosage: 1 MG, QD, PRN
     Route: 048
  9. OMEPRAZOLE [Concomitant]
     Dosage: 20 MG, BID
     Route: 048
  10. OXYCODONE [Concomitant]
     Indication: PAIN
     Dosage: 5 MG, Q4HR, PRN
     Route: 048
  11. ZOLPIDEM TARTRATE [Concomitant]
     Indication: SLEEP DISORDER
     Dosage: 10 MG, Q1HR, PRN
     Route: 048
  12. PREDNISONE [Concomitant]
     Dosage: 5 MG, QD
     Route: 048
  13. GENTAMICIN SULFATE [Concomitant]
     Dosage: 1-2 DROPS EACH EYE
  14. OMEPRAZOLE [Concomitant]
     Route: 048
  15. OXYCODONE HYDROCHLORIDE [Concomitant]
  16. CORTICOSTEROIDS [Concomitant]
     Dosage: SINGLE DOSE ONE (SD ONE) (DC)
     Route: 042
  17. DIPHENHYDRAMINE HYDROCHLORIDE [Concomitant]
     Dosage: SD ONE (DC)
     Route: 048
  18. ENOXAPARIN SODIUM [Concomitant]
     Route: 058
  19. FAMOTIDINE [Concomitant]
     Dosage: (DC)
     Route: 048
  20. LORAZEPAM [Concomitant]
     Dosage: QHS
     Route: 048
  21. NAPHAZOLINE HYDROCHLORIDE [Concomitant]
     Dosage: 1-2 DROPS EACH EYE OPH
  22. ONDANSETRON HYDROCHLORIDE [Concomitant]
     Dosage: Q8H, PRN
     Route: 042
  23. POLYMYXIN B SULFATE/TRIMETHOPRIM [Concomitant]
     Dosage: 1 DROP EACH EYE OPH
  24. SODIUM CHLORIDE [Concomitant]
     Dosage: Q10H (DC)
     Route: 042
  25. ZOLPIDEM TARTRATE [Concomitant]
     Route: 048

REACTIONS (7)
  - Pruritus [Recovered/Resolved]
  - Fatigue [Recovered/Resolved]
  - Dyspnoea [Recovered/Resolved]
  - Blood pressure increased [Not Recovered/Not Resolved]
  - Nausea [Recovered/Resolved with Sequelae]
  - Rash maculo-papular [Recovered/Resolved]
  - Decreased appetite [Recovered/Resolved]
